FAERS Safety Report 20327741 (Version 1)
Quarter: 2022Q1

REPORT INFORMATION
  Report Type: Spontaneous
  Country: US (occurrence: None)
  Receive Date: 20220111
  Receipt Date: 20220111
  Transmission Date: 20220423
  Serious: No
  Sender: FDA-Public Use
  Company Number: None

PATIENT
  Age: 52 Year
  Sex: Female
  Weight: 68.76 kg

DRUGS (12)
  1. CAPECITABINE [Suspect]
     Active Substance: CAPECITABINE
     Dosage: FREQUENCY : TWICE A DAY;?
     Route: 048
  2. TUKYSA [Concomitant]
     Active Substance: TUCATINIB
  3. GABAPENTIN [Concomitant]
     Active Substance: GABAPENTIN
  4. METHOTREXATE [Concomitant]
     Active Substance: METHOTREXATE
  5. ONDANSETRON [Concomitant]
     Active Substance: ONDANSETRON
  6. MORPHINE [Concomitant]
     Active Substance: MORPHINE
  7. COLACE [Concomitant]
     Active Substance: DOCUSATE SODIUM
  8. DUREZOL [Concomitant]
     Active Substance: DIFLUPREDNATE
  9. FOLIC ACID [Concomitant]
     Active Substance: FOLIC ACID
  10. SENNOSIDES [Concomitant]
     Active Substance: SENNOSIDES
  11. calcium 500 [Concomitant]
  12. VITAMIN D3 [Concomitant]
     Active Substance: CHOLECALCIFEROL

REACTIONS (1)
  - Disease progression [None]

NARRATIVE: CASE EVENT DATE: 20220111
